FAERS Safety Report 8578538 (Version 2)
Quarter: 2013Q1

REPORT INFORMATION
  Report Type: Spontaneous
  Country: US (occurrence: None)
  Receive Date: 20120521
  Receipt Date: 20130130
  Transmission Date: 20140127
  Serious: Yes (Hospitalization, Other)
  Sender: FDA-Public Use
  Company Number: CIP11002977

PATIENT
  Age: 66 Year
  Sex: Female

DRUGS (21)
  1. ACTONEL [Suspect]
     Indication: OSTEOPOROSIS
     Route: 048
     Dates: start: 20060307, end: 200805
  2. FOSAMAX [Suspect]
     Indication: OSTEOPOROSIS
     Dates: start: 200901, end: 200910
  3. ALENDRONATE SODIUM [Suspect]
     Indication: OSTEOPOROSIS
     Route: 048
     Dates: start: 20080510, end: 200901
  4. PREMPRO [Concomitant]
  5. HYDROCHLOROTHIAZIDE (HYDROCHLOROTHIAZIDE) [Concomitant]
  6. FOSINOPRIL SODIUM [Concomitant]
  7. LEVOTHYROXINE SODIUM [Concomitant]
  8. CALCITRIOL [Concomitant]
  9. CLARITIN /00917501/ (LORATADINE) [Concomitant]
  10. CALCIUM CARBONATE [Concomitant]
  11. GINKOBA (GINKGO BILOBA) [Concomitant]
  12. ALFALFA /01255601/ (MEDICAGO SATIVA) [Concomitant]
  13. ZINC (ZINC) [Concomitant]
  14. VITAMIN C /00008001/ (ASCORBIC ACID) [Concomitant]
  15. VITAMIN E /00110501/ (TOCOPHEROL) [Concomitant]
  16. VITAMIN B12 [Concomitant]
  17. MULTIVITAMIN /01229101/ (VITAMINS NOS) [Concomitant]
  18. TRANSDERM SCOP [Concomitant]
  19. EPIPEN [Concomitant]
  20. CHLORHEXIDINE GLUCONATE (CHLORHEXIDINE GLUCONATE) [Concomitant]
  21. VITAMIN D /00318501/ (COLECALCIFEROL) [Suspect]

REACTIONS (9)
  - Femur fracture [None]
  - Stress fracture [None]
  - Gait disturbance [None]
  - Pain in extremity [None]
  - Fall [None]
  - Pathological fracture [None]
  - Bone disorder [None]
  - Low turnover osteopathy [None]
  - Mobility decreased [None]
